FAERS Safety Report 6215127-1 (Version None)
Quarter: 2009Q2

REPORT INFORMATION
  Report Type: 
  Country: None (occurrence: None)
  Receive Date: 20090601
  Receipt Date: 20081031
  Transmission Date: 20091009
  Serious: Yes (Hospitalization)
  Sender: FDA-Public Use
  Company Number: 280934

PATIENT
  Age: 66 Year
  Sex: Female
  Weight: 86.2 kg

DRUGS (3)
  1. ACTIVELLA [Suspect]
     Indication: HORMONE THERAPY
     Dosage: ORAL
     Route: 048
  2. PREMPRO [Suspect]
     Indication: HORMONE THERAPY
     Dosage: ORAL
     Route: 048
  3. MEDROXYPROGESTERONE [Suspect]
     Indication: HORMONE THERAPY

REACTIONS (1)
  - BREAST CANCER [None]
